FAERS Safety Report 4902746-5 (Version None)
Quarter: 2006Q1

REPORT INFORMATION
  Report Type: 
  Country: None (occurrence: None)
  Receive Date: 20060113
  Receipt Date: 20050308
  Transmission Date: 20060701
  Serious: Yes (Other)
  Sender: FDA-Public Use
  Company Number: HQWYE591626AUG04

PATIENT
  Age: 54 Year
  Sex: Female
  Weight: 54.48 kg

DRUGS (9)
  1. PREMPRO [Suspect]
     Indication: HORMONE REPLACEMENT THERAPY
  2. ESTRACE [Suspect]
  3. ESTRADIOL [Suspect]
  4. FEMHRT [Suspect]
  5. MEDROXYPROGESTERONE [Suspect]
  6. PROVERA [Suspect]
  7. ETODOLAC [Concomitant]
  8. LEVOTHYROXINE SODIUM [Concomitant]
  9. LEVOXYL [Concomitant]

REACTIONS (1)
  - BREAST CANCER [None]
